FAERS Safety Report 5818675-9 (Version None)
Quarter: 2008Q3

REPORT INFORMATION
  Report Type: 
  Country: None (occurrence: None)
  Receive Date: 20080717
  Receipt Date: 20080717
  Transmission Date: 20090109
  Serious: Yes (Other)
  Sender: FDA-Public Use
  Company Number: None

PATIENT
  Age: 76 Year
  Sex: Female
  Weight: 58 kg

DRUGS (3)
  1. AMINOCAPROIC ACID [Suspect]
     Indication: OPERATIVE HAEMORRHAGE
     Dosage: 10 G ONCE IV BOLUS
     Route: 040
     Dates: start: 20070707, end: 20070707
  2. AMINOCAPROIC ACID [Suspect]
     Indication: PROPHYLAXIS
     Dosage: 10 G ONCE IV BOLUS
     Route: 040
     Dates: start: 20070707, end: 20070707
  3. AMINOCAPROIC ACID [Suspect]
     Dosage: 2 G/HR FOR 6 HOURS IV DRIP
     Route: 041
     Dates: start: 20070707, end: 20070707

REACTIONS (1)
  - GRAND MAL CONVULSION [None]
